FAERS Safety Report 5633478-6 (Version None)
Quarter: 2008Q1

REPORT INFORMATION
  Report Type: 
  Country: None (occurrence: None)
  Receive Date: 20080221
  Receipt Date: 20080209
  Transmission Date: 20080703
  Serious: Yes (Hospitalization, Other)
  Sender: FDA-Public Use
  Company Number: US-PFIZER INC-2007099514

PATIENT
  Age: 69 Year
  Sex: Male
  Weight: 86 kg

DRUGS (8)
  1. SUTENT [Suspect]
     Indication: RENAL CANCER METASTATIC
     Route: 048
     Dates: start: 20071008, end: 20071105
  2. IRON SULFATETHIAMIN COMPOUND TAB [Concomitant]
  3. TAMSULOSIN HCL [Concomitant]
  4. PROTONIX [Concomitant]
  5. ASCORBIC ACID [Concomitant]
  6. VICODIN [Concomitant]
  7. MARINOL [Concomitant]
  8. HERBAL PREPARATION [Concomitant]

REACTIONS (3)
  - BLOOD SODIUM DECREASED [None]
  - NEPHRITIS INTERSTITIAL [None]
  - RENAL FAILURE ACUTE [None]
